FAERS Safety Report 4539223-X (Version None)
Quarter: 2004Q4

REPORT INFORMATION
  Report Type: 
  Country: None (occurrence: None)
  Receive Date: 20041222
  Receipt Date: 20041215
  Transmission Date: 20050328
  Serious: Yes (Hospitalization)
  Sender: FDA-Public Use
  Company Number: 2004112033

PATIENT
  Sex: Male

DRUGS (4)
  1. CITALOR (ATORVASTATIN) [Suspect]
     Indication: HYPERCHOLESTEROLAEMIA
     Dosage: (10 MG), ORAL
     Route: 048
     Dates: start: 20040101
  2. ISOSORBIDE MONONITRATE [Concomitant]
  3. FUROSEMIDE [Interacting]
  4. ISOSORBIDE DINITRATE [Concomitant]

REACTIONS (1)
  - MYOCARDIAL INFARCTION [None]
